FAERS Safety Report 13042579 (Version 2)
Quarter: 2017Q1

REPORT INFORMATION
  Report Type: Spontaneous
  Country: GB (occurrence: GB)
  Receive Date: 20161219
  Receipt Date: 20170323
  Transmission Date: 20170428
  Serious: Yes (Other)
  Sender: FDA-Public Use
  Company Number: GB-BAXALTA-2016BLT009318

PATIENT
  Sex: Male
  Weight: 10 kg

DRUGS (4)
  1. CONTRIMOXAZOLE [Concomitant]
     Indication: PRODUCT USED FOR UNKNOWN INDICATION
  2. CONTRIMOXAZOLE [Concomitant]
     Indication: PROPHYLAXIS
     Dosage: UNK
  3. SUBCUVIA [Suspect]
     Active Substance: HUMAN IMMUNOGLOBULIN G
     Dosage: 10 ML, 1X A WEEK
     Route: 058
     Dates: start: 201601
  4. SUBCUVIA [Suspect]
     Active Substance: HUMAN IMMUNOGLOBULIN G
     Indication: HYPOGAMMAGLOBULINAEMIA
     Dosage: 5 ML, 1X A WEEK
     Route: 058
     Dates: start: 20151218

REACTIONS (2)
  - Inappropriate schedule of drug administration [Recovered/Resolved]
  - Infection [Recovered/Resolved]
